FAERS Safety Report 8829090 (Version 2)
Quarter: 2013Q1

REPORT INFORMATION
  Report Type: Report from Study
  Country: CA (occurrence: CA)
  Receive Date: 20121008
  Receipt Date: 20130115
  Transmission Date: 20140127
  Serious: Yes (Hospitalization, Disabling)
  Sender: FDA-Public Use
  Company Number: CA-GILEAD-2012-0061367

PATIENT
  Age: 75 Year
  Sex: Female

DRUGS (4)
  1. AMBRISENTAN [Suspect]
     Indication: PULMONARY ARTERIAL HYPERTENSION
     Dosage: 5MG PER DAY
     Dates: start: 20120718, end: 20120923
  2. PLACEBO [Suspect]
     Indication: PULMONARY ARTERIAL HYPERTENSION
     Dosage: UNK
     Dates: start: 20120718, end: 20120923
  3. CLOPIDOGREL BISULFATE [Concomitant]
  4. PLAVIX [Concomitant]
     Indication: CEREBROVASCULAR ACCIDENT
     Dosage: 75MG PER DAY
     Route: 048
     Dates: start: 20120905

REACTIONS (4)
  - Hypotension [Recovered/Resolved]
  - Ischaemic stroke [Recovered/Resolved]
  - Carotid artery stenosis [Recovered/Resolved with Sequelae]
  - Subclavian artery stenosis [Recovered/Resolved with Sequelae]
